FAERS Safety Report 9904377 (Version 1)
Quarter: 2014Q1

REPORT INFORMATION
  Report Type: Spontaneous
  Country: US (occurrence: US)
  Receive Date: 20140218
  Receipt Date: 20140218
  Transmission Date: 20141002
  Serious: No
  Sender: FDA-Public Use
  Company Number: US-PFIZER INC-2014041756

PATIENT
  Age: 63 Year
  Sex: Female

DRUGS (10)
  1. SUTENT [Suspect]
     Indication: RENAL CANCER
     Dosage: 50 MG, QDX 28 DAYS X 14 DAYS OFF
     Route: 048
     Dates: start: 20131211
  2. SUTENT [Suspect]
     Dosage: 37.5 MG, UNK
  3. METFORMIN [Concomitant]
  4. JANUVIA [Concomitant]
  5. ATENOLOL [Concomitant]
  6. LOVASTATIN [Concomitant]
  7. AMLODIPINE [Concomitant]
  8. MAGNESIUM [Concomitant]
  9. VITAMIN D3 [Concomitant]
  10. ASPIRIN [Concomitant]

REACTIONS (2)
  - Swelling face [Unknown]
  - Yellow skin [Unknown]
